FAERS Safety Report 13015948 (Version 2)
Quarter: 2017Q1

REPORT INFORMATION
  Report Type: Spontaneous
  Country: US (occurrence: US)
  Receive Date: 20161212
  Receipt Date: 20170111
  Transmission Date: 20170428
  Serious: Yes (Hospitalization)
  Sender: FDA-Public Use
  Company Number: US-JNJFOC-20161101173

PATIENT
  Age: 83 Year
  Sex: Male
  Weight: 66.5 kg

DRUGS (1)
  1. XARELTO [Suspect]
     Active Substance: RIVAROXABAN
     Indication: PULMONARY EMBOLISM
     Route: 048
     Dates: start: 20140827, end: 20141005

REACTIONS (5)
  - Melaena [Recovering/Resolving]
  - Haemoptysis [Recovering/Resolving]
  - Rectal haemorrhage [Recovering/Resolving]
  - Haematuria [Recovering/Resolving]
  - Acute kidney injury [Recovering/Resolving]

NARRATIVE: CASE EVENT DATE: 201410
